FAERS Safety Report 11230668 (Version 1)
Quarter: 2015Q2

REPORT INFORMATION
  Report Type: Spontaneous
  Country: US (occurrence: None)
  Receive Date: 20150629
  Receipt Date: 20150629
  Transmission Date: 20150821
  Serious: Yes (Other)
  Sender: FDA-Public Use
  Company Number: None

PATIENT
  Age: 46 Year
  Sex: Female
  Weight: 87.09 kg

DRUGS (4)
  1. ATIVAN [Concomitant]
     Active Substance: LORAZEPAM
  2. MULTIVITAMIN [Concomitant]
     Active Substance: VITAMINS
  3. VITAMIN D [Concomitant]
     Active Substance: CHOLECALCIFEROL
  4. PROGESTERONE 50 MG SAVERITE PHARMACY [Suspect]
     Active Substance: PROGESTERONE
     Indication: MENOPAUSAL SYMPTOMS
     Dosage: 50 MG, ONCE A DAY AT BEDTIME
     Route: 048
     Dates: start: 20150526, end: 20150528

REACTIONS (4)
  - Headache [None]
  - Palpitations [None]
  - Dizziness [None]
  - Speech disorder [None]

NARRATIVE: CASE EVENT DATE: 20150527
